FAERS Safety Report 25282728 (Version 2)
Quarter: 2025Q2

REPORT INFORMATION
  Report Type: Spontaneous
  Country: US (occurrence: US)
  Receive Date: 20250508
  Receipt Date: 20250526
  Transmission Date: 20250717
  Serious: No
  Sender: AVERITAS
  Company Number: US-GRUNENTHAL-2025-104746

PATIENT
  Age: 52 Year
  Sex: Male
  Weight: 83.9 kg

DRUGS (16)
  1. QUTENZA [Suspect]
     Active Substance: CAPSAICIN
     Indication: Diabetic neuropathy
     Route: 061
     Dates: start: 20250303, end: 20250303
  2. QUTENZA [Suspect]
     Active Substance: CAPSAICIN
     Route: 061
     Dates: start: 202409, end: 202409
  3. QUTENZA [Suspect]
     Active Substance: CAPSAICIN
     Route: 061
  4. UNSPECIFIED INGREDIENT [Concomitant]
     Active Substance: UNSPECIFIED INGREDIENT
     Route: 065
  5. METOPROLOL SUCCINATE [Concomitant]
     Active Substance: METOPROLOL SUCCINATE
     Indication: Tachycardia
     Dosage: UNK UNK, 1/DAY
     Route: 065
     Dates: start: 20151101
  6. RABEPRAZOLE [Concomitant]
     Active Substance: RABEPRAZOLE
     Indication: Gastrooesophageal reflux disease
     Route: 065
     Dates: start: 20170615
  7. ESCITALOPRAM OXALATE [Concomitant]
     Active Substance: ESCITALOPRAM OXALATE
     Indication: Depression
     Dosage: 10 MILLIGRAM, 1/DAY
     Route: 065
     Dates: start: 20161104
  8. PREGABALIN [Concomitant]
     Active Substance: PREGABALIN
     Indication: Neuropathy peripheral
     Dosage: 300 MILLIGRAM, 3/DAY
     Route: 065
     Dates: start: 20170116
  9. PREGABALIN [Concomitant]
     Active Substance: PREGABALIN
     Dosage: 100 MILLIGRAM, 3/DAY
     Route: 065
     Dates: start: 20170116
  10. METFORMIN [Concomitant]
     Active Substance: METFORMIN HYDROCHLORIDE
     Indication: Diabetes mellitus
     Dosage: 1000 MILLIGRAM, 2/DAY
     Route: 065
     Dates: start: 20170501
  11. JARDIANCE [Concomitant]
     Active Substance: EMPAGLIFLOZIN
     Indication: Diabetes mellitus
     Dosage: 25 MILLIGRAM, 1/DAY
     Route: 065
     Dates: start: 20200301
  12. METHIMAZOLE [Concomitant]
     Active Substance: METHIMAZOLE
     Indication: Graves^ disease
     Route: 065
     Dates: start: 20170501
  13. METHIMAZOLE [Concomitant]
     Active Substance: METHIMAZOLE
     Indication: Hyperthyroidism
  14. ARMODAFINIL [Concomitant]
     Active Substance: ARMODAFINIL
     Indication: Fatigue
     Dosage: 50 MILLIGRAM, 1/DAY
     Route: 065
     Dates: start: 20180915
  15. ADDERALL [Concomitant]
     Active Substance: AMPHETAMINE ASPARTATE\AMPHETAMINE SULFATE\DEXTROAMPHETAMINE SACCHARATE\DEXTROAMPHETAMINE SULFATE
     Indication: Attention deficit hyperactivity disorder
     Route: 065
     Dates: start: 20231116
  16. UNSPECIFIED INGREDIENT [Concomitant]
     Active Substance: UNSPECIFIED INGREDIENT
     Indication: Sleep apnoea syndrome
     Route: 065
     Dates: start: 20180117

REACTIONS (6)
  - Application site pain [Recovering/Resolving]
  - Application site pain [Recovering/Resolving]
  - Allergic sinusitis [Unknown]
  - Accidental exposure to product [Unknown]
  - Application site pain [Recovering/Resolving]
  - Application site pain [Recovering/Resolving]

NARRATIVE: CASE EVENT DATE: 20250303
